FAERS Safety Report 10227261 (Version 1)
Quarter: 2014Q2

REPORT INFORMATION
  Report Type: Spontaneous
  Country: JP (occurrence: None)
  Receive Date: 20140606
  Receipt Date: 20140606
  Transmission Date: 20141212
  Serious: Yes (Other)
  Sender: FDA-Public Use
  Company Number: FK201402172

PATIENT
  Age: 72 Year
  Sex: Female

DRUGS (3)
  1. METHOTREXATE [Suspect]
     Indication: RHEUMATOID ARTHRITIS
     Dosage: WK
  2. ETANERCEPT [Suspect]
     Indication: RHEUMATOID ARTHRITIS
     Dosage: 2 IN 1 WK
  3. PREDNISOLONE (PREDNISOLONE) [Concomitant]

REACTIONS (4)
  - Metastases to spine [None]
  - Spinal compression fracture [None]
  - Bone neoplasm [None]
  - Matrix metalloproteinase-3 increased [None]
